FAERS Safety Report 4477085-X (Version None)
Quarter: 2004Q4

REPORT INFORMATION
  Report Type: 
  Country: None (occurrence: None)
  Receive Date: 20041012
  Receipt Date: 20041001
  Transmission Date: 20050328
  Serious: Yes (Other)
  Sender: FDA-Public Use
  Company Number: 163-20785-04100111

PATIENT
  Sex: Male

DRUGS (3)
  1. THALOMID [Suspect]
     Indication: PROSTATE CANCER
     Dosage: 200 MG, QAM DAY 2; QPM X 26 D, FROM 3, Q28D, ORAL
     Route: 048
  2. DOCETAXEL (DOCETAXEL ) (INJECTION FOR INFUSION) [Suspect]
     Indication: PROSTATE CANCER
     Dosage: 30 MG/M2, IV X 30 MIN QW ON DAY 2 QW X 3 WLS Q28D, ORAL
     Route: 048
  3. DEXAMETHASONE [Suspect]
     Indication: PROSTATE CANCER
     Dosage: 8 MG , X1 ON DAY 1, BID ON DAY 2 QW X 3 WKS Q28D, ORAL
     Route: 048

REACTIONS (2)
  - DISEASE PROGRESSION [None]
  - HYPERMAGNESAEMIA [None]
